FAERS Safety Report 17742534 (Version 7)
Quarter: 2020Q3

REPORT INFORMATION
  Report Type: Report from Study
  Country: CA (occurrence: CA)
  Receive Date: 20200504
  Receipt Date: 20200916
  Transmission Date: 20201102
  Serious: Yes (Other)
  Sender: FDA-Public Use
  Company Number: NVSC2020CA112011

PATIENT
  Age: 59 Year
  Sex: Female

DRUGS (5)
  1. SANDOSTATIN [Suspect]
     Active Substance: OCTREOTIDE ACETATE
     Indication: CARCINOID TUMOUR
     Dosage: UNK
     Route: 058
     Dates: start: 202003, end: 202003
  2. SANDOSTATIN LAR DEPOT [Suspect]
     Active Substance: OCTREOTIDE ACETATE
     Indication: CARCINOID TUMOUR
     Dosage: 20 MG, QMO
     Route: 030
     Dates: start: 20200327
  3. SANDOSTATIN LAR DEPOT [Suspect]
     Active Substance: OCTREOTIDE ACETATE
  4. SANDOSTATIN LAR DEPOT [Suspect]
     Active Substance: OCTREOTIDE ACETATE
     Indication: NEUROENDOCRINE TUMOUR
     Dosage: 30 MG, QMO
     Route: 030
  5. SANDOSTATIN [Suspect]
     Active Substance: OCTREOTIDE ACETATE
     Indication: NEUROENDOCRINE TUMOUR

REACTIONS (18)
  - Diarrhoea [Unknown]
  - Erythema [Unknown]
  - Sleep disorder [Unknown]
  - Chills [Unknown]
  - Nausea [Unknown]
  - Flushing [Unknown]
  - Drug ineffective [Unknown]
  - Reflux gastritis [Unknown]
  - Feeling of body temperature change [Unknown]
  - Headache [Unknown]
  - Injection site pain [Unknown]
  - Bladder obstruction [Unknown]
  - Hypertension [Unknown]
  - Vaginal infection [Unknown]
  - Urinary retention [Unknown]
  - Pain [Unknown]
  - Pruritus [Unknown]
  - Malignant neoplasm progression [Unknown]

NARRATIVE: CASE EVENT DATE: 2020
